FAERS Safety Report 8404860-9 (Version None)
Quarter: 2012Q2

REPORT INFORMATION
  Report Type: 
  Country: None (occurrence: None)
  Receive Date: 20120601
  Receipt Date: 20120417
  Transmission Date: 20120825
  Serious: No
  Sender: FDA-Public Use
  Company Number: US-ASTRAZENECA-2012SE25399

PATIENT
  Age: 63 Year
  Sex: Female

DRUGS (2)
  1. LISINOPRIL [Suspect]
     Route: 048
  2. ATACAND HCT [Suspect]
     Route: 048

REACTIONS (3)
  - JOINT SWELLING [None]
  - THERAPEUTIC RESPONSE UNEXPECTED [None]
  - POLLAKIURIA [None]
